FAERS Safety Report 14242710 (Version 1)
Quarter: 2017Q4

REPORT INFORMATION
  Report Type: Spontaneous
  Country: US (occurrence: US)
  Receive Date: 20171201
  Receipt Date: 20171201
  Transmission Date: 20180321
  Serious: Yes (Other)
  Sender: FDA-Public Use
  Company Number: US-SA-2017SA236334

PATIENT
  Age: 69 Year
  Sex: Male

DRUGS (1)
  1. BCG FOR IMMUNOTHERAPY [Suspect]
     Active Substance: BACILLUS CALMETTE-GUERIN ANTIGEN, UNSPECIFIED SUBSTRAIN
     Indication: BLADDER CANCER
     Route: 043

REACTIONS (6)
  - Exercise tolerance decreased [Recovering/Resolving]
  - Interstitial lung disease [Recovering/Resolving]
  - Alveolitis allergic [Recovering/Resolving]
  - Dyspnoea [Recovering/Resolving]
  - Rales [Recovering/Resolving]
  - Hypoxia [Recovering/Resolving]
